FAERS Safety Report 6023811-8 (Version None)
Quarter: 2008Q4

REPORT INFORMATION
  Report Type: 
  Country: None (occurrence: None)
  Receive Date: 20081230
  Receipt Date: 20081215
  Transmission Date: 20090506
  Serious: Yes (Death)
  Sender: FDA-Public Use
  Company Number: US-PFIZER INC-2008153463

PATIENT
  Age: 51 Year
  Sex: Female

DRUGS (3)
  1. SERTRALINE HCL [Suspect]
     Route: 048
  2. NAPROXEN AND NAPROXEN SODIUM [Suspect]
     Route: 048
  3. HYDROXYZINE HCL [Suspect]
     Route: 048

REACTIONS (1)
  - COMPLETED SUICIDE [None]
